FAERS Safety Report 10079205 (Version 3)
Quarter: 2014Q2

REPORT INFORMATION
  Report Type: Spontaneous
  Country: US (occurrence: US)
  Receive Date: 20140415
  Receipt Date: 20140609
  Transmission Date: 20141212
  Serious: Yes (Hospitalization, Other)
  Sender: FDA-Public Use
  Company Number: US-FRI-1000052163

PATIENT
  Age: 55 Year
  Sex: Female
  Weight: 129 kg

DRUGS (15)
  1. VIIBRYD [Suspect]
     Indication: DEPRESSION
     Dosage: 10 MG
     Route: 048
     Dates: start: 20131115, end: 20131121
  2. VIIBRYD [Suspect]
     Dosage: 20 MG
     Route: 048
     Dates: start: 20131122, end: 20131128
  3. VIIBRYD [Suspect]
     Indication: DEPRESSION
     Dosage: 40 MG
     Route: 048
     Dates: start: 20131129, end: 20131202
  4. VIIBRYD [Suspect]
     Indication: DEPRESSION
     Dosage: 20 MG
     Route: 048
     Dates: start: 20131203, end: 20140125
  5. ZOLOFT [Concomitant]
     Indication: DEPRESSION
     Dosage: 300 MG
  6. REMERON [Concomitant]
     Indication: DEPRESSION
     Dosage: 90 MG
  7. SEROQUEL [Concomitant]
     Indication: DEPRESSION
     Dosage: 300 MG
  8. XANAX [Concomitant]
     Indication: DEPRESSION
     Dosage: 1 MG
  9. GEODON [Concomitant]
     Indication: DEPRESSION
     Dosage: 20 MG
  10. GABAPENTIN [Concomitant]
     Indication: NEURALGIA
     Dosage: 1800 MG
  11. INSULIN [Concomitant]
     Indication: DIABETES MELLITUS
  12. LIPITOR [Concomitant]
     Indication: HYPERLIPIDAEMIA
  13. PROTONIX [Concomitant]
     Indication: GASTROOESOPHAGEAL REFLUX DISEASE
  14. METOPROLOL [Concomitant]
     Indication: HYPERTENSION
  15. DOXYCYCLINE [Concomitant]

REACTIONS (6)
  - Cataplexy [Recovered/Resolved]
  - Fall [Recovered/Resolved]
  - Joint injury [Recovered/Resolved]
  - Cardiomegaly [Not Recovered/Not Resolved]
  - Pulmonary hypertension [Not Recovered/Not Resolved]
  - Cardiac failure congestive [Recovered/Resolved]
